FAERS Safety Report 14030828 (Version 3)
Quarter: 2018Q1

REPORT INFORMATION
  Report Type: Report from Study
  Country: PL (occurrence: PL)
  Receive Date: 20171002
  Receipt Date: 20180302
  Transmission Date: 20180508
  Serious: Yes (Death, Life-Threatening, Hospitalization)
  Sender: FDA-Public Use
  Company Number: PHHY2014PL082912

PATIENT
  Age: 65 Year
  Sex: Female
  Weight: 72 kg

DRUGS (1)
  1. AFINITOR [Suspect]
     Active Substance: EVEROLIMUS
     Indication: METASTATIC RENAL CELL CARCINOMA
     Dosage: 10 MG, QD
     Route: 048
     Dates: start: 20140204, end: 20140404

REACTIONS (13)
  - Blood alkaline phosphatase increased [Unknown]
  - Pyrexia [Fatal]
  - Alanine aminotransferase increased [Not Recovered/Not Resolved]
  - Fatigue [Unknown]
  - Decreased appetite [Unknown]
  - Asthenia [Fatal]
  - Diarrhoea [Recovered/Resolved]
  - Dyspnoea [Unknown]
  - Blood glucose increased [Unknown]
  - Hypertension [Unknown]
  - Pneumonia [Fatal]
  - Cardiopulmonary failure [Fatal]
  - Aspartate aminotransferase increased [Not Recovered/Not Resolved]

NARRATIVE: CASE EVENT DATE: 20140204
